FAERS Safety Report 23567445 (Version 2)
Quarter: 2024Q1

REPORT INFORMATION
  Report Type: Report from Study
  Country: US (occurrence: US)
  Receive Date: 20240226
  Receipt Date: 20240319
  Transmission Date: 20240410
  Serious: Yes (Hospitalization)
  Sender: FDA-Public Use
  Company Number: US-002147023-NVSC2021US192569

PATIENT
  Sex: Female
  Weight: 68.027 kg

DRUGS (7)
  1. TREPROSTINIL [Suspect]
     Active Substance: TREPROSTINIL
     Dosage: UNK,63 NG/KG/ MI N
     Route: 058
     Dates: start: 20210720
  2. TREPROSTINIL [Suspect]
     Active Substance: TREPROSTINIL
     Indication: Pulmonary arterial hypertension
     Dosage: 58 UNK, CONT (58 NG/KG/MIN CONTINUOUS)
     Route: 058
  3. TREPROSTINIL [Suspect]
     Active Substance: TREPROSTINIL
     Dosage: 51 UNK, CONT (51 NG/KG/MIN)
     Route: 058
     Dates: start: 20210720
  4. TREPROSTINIL [Suspect]
     Active Substance: TREPROSTINIL
     Dosage: 46 NG/KG/ MIN
     Route: 058
     Dates: start: 20210720
  5. TREPROSTINIL [Suspect]
     Active Substance: TREPROSTINIL
     Dosage: 42 NG, CONT (51 NG/KG/MIN)
     Route: 058
  6. ADCIRCA [Concomitant]
     Active Substance: TADALAFIL
     Indication: Pulmonary arterial hypertension
     Dosage: UNK
     Route: 065
  7. TADALAFIL [Concomitant]
     Active Substance: TADALAFIL
     Indication: Pulmonary arterial hypertension
     Route: 065

REACTIONS (5)
  - COVID-19 [Recovered/Resolved]
  - Hospitalisation [Unknown]
  - Abnormal dreams [Unknown]
  - Dyspnoea [Unknown]
  - Infusion site pain [Unknown]
